FAERS Safety Report 13848016 (Version 1)
Quarter: 2017Q3

REPORT INFORMATION
  Report Type: Spontaneous
  Country: US (occurrence: US)
  Receive Date: 20170808
  Receipt Date: 20170808
  Transmission Date: 20171127
  Serious: Yes (Disabling)
  Sender: FDA-Public Use
  Company Number: None

PATIENT
  Age: 43 Year
  Sex: Male
  Weight: 74.25 kg

DRUGS (7)
  1. MULTI-VITAMIN [Concomitant]
     Active Substance: .ALPHA.-TOCOPHEROL ACETATE, DL-\ASCORBIC ACID\CYANOCOBALAMIN\FLUORIDE ION\FOLIC ACID\NIACIN\PYRIDOXINE\RIBOFLAVIN\THIAMINE\VITAMIN A\VITAMIN D
  2. MAGNESIUM [Concomitant]
     Active Substance: MAGNESIUM
  3. CIPRO [Suspect]
     Active Substance: CIPROFLOXACIN HYDROCHLORIDE
     Indication: URINARY TRACT INFECTION
     Dosage: ?          QUANTITY:2 TABLET(S);?EVERY 12 HOURS ORAL
     Route: 048
  4. GARLIC. [Concomitant]
     Active Substance: GARLIC
  5. COQ10 [Concomitant]
     Active Substance: UBIDECARENONE
  6. ACETYL L CARNITINE/ALPHA LIPOIC ACID [Concomitant]
  7. FISH OIL [Concomitant]
     Active Substance: FISH OIL

REACTIONS (5)
  - Burning sensation [None]
  - Pain [None]
  - Tendon pain [None]
  - Arthropathy [None]
  - Back pain [None]

NARRATIVE: CASE EVENT DATE: 20170111
